FAERS Safety Report 9425469 (Version 5)
Quarter: 2014Q1

REPORT INFORMATION
  Report Type: Spontaneous
  Country: DE (occurrence: DE)
  Receive Date: 20130729
  Receipt Date: 20140307
  Transmission Date: 20141002
  Serious: Yes (Hospitalization)
  Sender: FDA-Public Use
  Company Number: DE-VERTEX PHARMACEUTICALS INC-2013-008323

PATIENT
  Age: 58 Year
  Sex: Female

DRUGS (7)
  1. INCIVO [Suspect]
     Indication: CHRONIC HEPATITIS C
     Dosage: 2250 MG, QD, TABLET
     Route: 048
     Dates: start: 20130410, end: 20130429
  2. RIBAVIRIN [Suspect]
     Indication: CHRONIC HEPATITIS C
     Dosage: 1200 MG, QD
     Route: 048
     Dates: start: 20130410, end: 20130429
  3. RIBAVIRIN [Suspect]
     Dosage: UNK
     Route: 048
     Dates: start: 20130503
  4. PEGASYS [Suspect]
     Indication: CHRONIC HEPATITIS C
     Dosage: UNK
     Route: 058
  5. PEGASYS [Suspect]
     Dosage: 180 ?G, UNK
     Route: 058
     Dates: end: 20130410
  6. LEVOTHYROXINE [Concomitant]
     Indication: HYPOTHYROIDISM
     Dosage: 75 ?G, QD
     Route: 065
  7. METOCLOPRAMIDE [Concomitant]
     Route: 065

REACTIONS (5)
  - Leukopenia [Unknown]
  - Nausea [Recovered/Resolved]
  - Vomiting [Recovered/Resolved]
  - Anaemia [Unknown]
  - Hyperbilirubinaemia [Unknown]
